FAERS Safety Report 9690038 (Version 1)
Quarter: 2013Q4

REPORT INFORMATION
  Report Type: Spontaneous
  Country: IT (occurrence: IT)
  Receive Date: 20131115
  Receipt Date: 20131115
  Transmission Date: 20140711
  Serious: Yes (Other)
  Sender: FDA-Public Use
  Company Number: IT-TEVA-443755ISR

PATIENT
  Age: 57 Year
  Sex: Male
  Weight: 67 kg

DRUGS (7)
  1. FLUOROURACILE TEVA [Suspect]
     Indication: RECTAL CANCER
     Dosage: 569.6 MILLIGRAM DAILY;
     Route: 040
     Dates: start: 20130220, end: 20130404
  2. FLUOROURACILE TEVA [Suspect]
     Dosage: 854.4 MILLIGRAM DAILY;
     Route: 042
     Dates: start: 20130220, end: 20130404
  3. ERBITUX [Suspect]
     Indication: RECTAL CANCER
     Dosage: 356 MILLIGRAM DAILY;
     Route: 042
     Dates: start: 20130220, end: 20130404
  4. OXALIPLATINO HOSPIRA [Suspect]
     Indication: RECTAL CANCER
     Dosage: 121 MILLIGRAM DAILY; POWDER FOR SOLUTION FOR INTRAVENOUS  INFUSION
     Route: 042
     Dates: start: 20130220, end: 20130404
  5. SOLDESAM [Concomitant]
     Dosage: 8 MILLIGRAM DAILY;
     Route: 040
     Dates: start: 20130220, end: 20130404
  6. ONDANSETRONE HIKMA [Concomitant]
     Dosage: 8 MILLIGRAM DAILY;
     Route: 042
     Dates: start: 20130220, end: 20130404
  7. RANIDIL [Concomitant]
     Dosage: 50 MILLIGRAM DAILY;
     Route: 042
     Dates: start: 20130220, end: 20130404

REACTIONS (4)
  - Chest pain [Unknown]
  - Diarrhoea [Unknown]
  - Stomatitis [Unknown]
  - Skin discolouration [Unknown]
